FAERS Safety Report 4836027-5 (Version None)
Quarter: 2005Q4

REPORT INFORMATION
  Report Type: 
  Country: None (occurrence: None)
  Receive Date: 20051123
  Receipt Date: 20050810
  Transmission Date: 20060501
  Serious: Yes (Hospitalization)
  Sender: FDA-Public Use
  Company Number: US-MERCK-0508USA01988

PATIENT
  Age: 48 Year
  Sex: Male
  Weight: 91 kg

DRUGS (9)
  1. VIOXX [Suspect]
     Indication: SHOULDER PAIN
     Route: 048
     Dates: start: 20040303, end: 20040930
  2. VIOXX [Suspect]
     Route: 048
     Dates: start: 20040303, end: 20040930
  3. VIOXX [Suspect]
     Indication: BACK PAIN
     Route: 048
     Dates: start: 20040303, end: 20040930
  4. VIOXX [Suspect]
     Route: 048
     Dates: start: 20040303, end: 20040930
  5. BEXTRA [Concomitant]
     Route: 065
     Dates: start: 20040323
  6. TAGAMET [Concomitant]
     Indication: PEPTIC ULCER
     Route: 065
  7. NOVOLIN N [Concomitant]
     Indication: DIABETES MELLITUS
     Route: 065
     Dates: start: 20040301
  8. COUMADIN [Concomitant]
     Indication: DEEP VEIN THROMBOSIS
     Route: 065
  9. GLUCOVANCE [Concomitant]
     Indication: DIABETES MELLITUS NON-INSULIN-DEPENDENT
     Route: 065
     Dates: start: 20040301

REACTIONS (23)
  - BACK PAIN [None]
  - BLOOD CHOLESTEROL INCREASED [None]
  - CEREBROVASCULAR ACCIDENT [None]
  - CHEST PAIN [None]
  - CONTUSION [None]
  - CORONARY ARTERY DISEASE [None]
  - EPISTAXIS [None]
  - HAEMATOMA [None]
  - HAEMOPTYSIS [None]
  - HEADACHE [None]
  - HYPERTENSION [None]
  - INFLAMMATION [None]
  - MEMORY IMPAIRMENT [None]
  - MUSCLE SPASMS [None]
  - MUSCULOSKELETAL CHEST PAIN [None]
  - NON-CARDIAC CHEST PAIN [None]
  - OEDEMA PERIPHERAL [None]
  - POST PROCEDURAL HAEMORRHAGE [None]
  - RECTAL HAEMORRHAGE [None]
  - RETINAL HAEMORRHAGE [None]
  - SKIN LACERATION [None]
  - TRANSIENT ISCHAEMIC ATTACK [None]
  - VIRAL UPPER RESPIRATORY TRACT INFECTION [None]
